FAERS Safety Report 6941801-5 (Version None)
Quarter: 2010Q3

REPORT INFORMATION
  Report Type: 
  Country: None (occurrence: None)
  Receive Date: 20100826
  Receipt Date: 20100816
  Transmission Date: 20110219
  Serious: Yes (Other)
  Sender: FDA-Public Use
  Company Number: US-PFIZER INC-2010103135

PATIENT
  Sex: Female
  Weight: 58.9 kg

DRUGS (3)
  1. DILANTIN [Suspect]
     Indication: EPILEPSY
     Dosage: 130MG IN THE MORNING AND 200MG AT THE NIGHT
     Dates: start: 19930101
  2. LAMICTAL [Concomitant]
     Indication: EPILEPSY
     Dosage: UNK
  3. NEURONTIN [Concomitant]
     Indication: EPILEPSY
     Dosage: UNK

REACTIONS (6)
  - ANTICONVULSANT DRUG LEVEL INCREASED [None]
  - DIZZINESS [None]
  - EPILEPSY [None]
  - MALAISE [None]
  - TREMOR [None]
  - VOMITING [None]
